FAERS Safety Report 23041832 (Version 1)
Quarter: 2023Q4

REPORT INFORMATION
  Report Type: Spontaneous
  Country: IT (occurrence: IT)
  Receive Date: 20231007
  Receipt Date: 20231007
  Transmission Date: 20240110
  Serious: Yes (Death, Other)
  Sender: FDA-Public Use
  Company Number: IT-AMGEN-ITASP2023178275

PATIENT

DRUGS (4)
  1. BLINATUMOMAB [Suspect]
     Active Substance: BLINATUMOMAB
     Indication: Acute lymphocytic leukaemia
     Dosage: 9 MICROGRAM, QD (OVER 24 H FOR THE FIRST WEEK)
     Route: 042
  2. BLINATUMOMAB [Suspect]
     Active Substance: BLINATUMOMAB
     Dosage: 9 MICROGRAM, QD (OVER 24 H FOR THE REMAINING 3 WEEKS, FOLLOWED BY A 2-WEEK BREAK)
     Route: 042
  3. INOTUZUMAB OZOGAMICIN [Suspect]
     Active Substance: INOTUZUMAB OZOGAMICIN
     Indication: Acute lymphocytic leukaemia
     Dosage: 1.8 MILLIGRAM/M2, QD (FOR THE FIRST CYCLE)
     Route: 042
  4. INOTUZUMAB OZOGAMICIN [Suspect]
     Active Substance: INOTUZUMAB OZOGAMICIN
     Dosage: 1.5 MILLIGRAM/M2, QD (DIVIDED IN THREE WEEKLY DOSES)
     Route: 042

REACTIONS (15)
  - Venoocclusive disease [Fatal]
  - Acute lymphocytic leukaemia [Fatal]
  - Haemorrhage [Fatal]
  - Infection [Fatal]
  - Haematotoxicity [Unknown]
  - Hepatotoxicity [Unknown]
  - Sacroiliitis [Unknown]
  - Disease complication [Unknown]
  - Cytomegalovirus enterocolitis [Unknown]
  - Neurotoxicity [Unknown]
  - Pulmonary embolism [Unknown]
  - Deep vein thrombosis [Unknown]
  - Hepatic function abnormal [Unknown]
  - Post procedural complication [Unknown]
  - Drug ineffective [Unknown]
